FAERS Safety Report 17501287 (Version 1)
Quarter: 2020Q1

REPORT INFORMATION
  Report Type: Spontaneous
  Country: US (occurrence: US)
  Receive Date: 20200224
  Receipt Date: 20200224
  Transmission Date: 20200409
  Serious: Yes (Hospitalization)
  Sender: FDA-Public Use
  Company Number: None

PATIENT
  Age: 11 Year
  Sex: Male

DRUGS (4)
  1. PULMOZYME [Suspect]
     Active Substance: DORNASE ALFA
     Indication: CYSTIC FIBROSIS
     Route: 055
     Dates: start: 20180904
  2. SABRIL [Concomitant]
     Active Substance: VIGABATRIN
  3. BETHKIS [Concomitant]
     Active Substance: TOBRAMYCIN
  4. BACLOFEN. [Concomitant]
     Active Substance: BACLOFEN

REACTIONS (2)
  - Respiratory syncytial virus infection [None]
  - Pneumonia [None]

NARRATIVE: CASE EVENT DATE: 20200209
